FAERS Safety Report 21591468 (Version 1)
Quarter: 2022Q4

REPORT INFORMATION
  Report Type: Spontaneous
  Country: DK (occurrence: DK)
  Receive Date: 20221114
  Receipt Date: 20221114
  Transmission Date: 20230113
  Serious: Yes (Other)
  Sender: FDA-Public Use
  Company Number: None

PATIENT
  Age: 64 Year
  Sex: Female

DRUGS (7)
  1. STIVARGA [Suspect]
     Active Substance: REGORAFENIB
     Indication: Gastrointestinal stromal tumour
     Dosage: 40 MG
     Route: 048
     Dates: start: 2019
  2. SUTENT [Suspect]
     Active Substance: SUNITINIB MALATE
     Indication: Gastrointestinal stromal tumour
     Dosage: STRENGTH AND DOSE INTERVAL: UNKNOWN
     Route: 048
     Dates: start: 20190322, end: 2019
  3. SUNITINIB MALATE [Suspect]
     Active Substance: SUNITINIB MALATE
     Indication: Gastrointestinal stromal tumour
     Dosage: 37.5 MG
     Dates: start: 20190322, end: 2019
  4. GLIVEC [Concomitant]
     Active Substance: IMATINIB MESYLATE
     Indication: Gastrointestinal stromal tumour
     Dosage: STRENGTH: UNKNOWNDOSE: INCREASED FROM 200 TO 300 MG A DAY 04SEP2018 AND TO 400 MG A DAY 20SEP2018
     Route: 048
     Dates: start: 2005, end: 20190321
  5. IMATINIB MESYLATE [Concomitant]
     Active Substance: IMATINIB MESYLATE
     Indication: Gastrointestinal stromal tumour
     Dosage: 200 MG
     Dates: start: 2005, end: 20190321
  6. IMATINIB MESYLATE [Concomitant]
     Active Substance: IMATINIB MESYLATE
     Indication: Gastrointestinal stromal tumour
     Dosage: 300 MG
     Dates: start: 20220904
  7. IMATINIB MESYLATE [Concomitant]
     Active Substance: IMATINIB MESYLATE
     Indication: Gastrointestinal stromal tumour
     Dosage: 400 MG
     Dates: start: 20220920

REACTIONS (5)
  - Palpitations [Unknown]
  - Cardiac failure chronic [Not Recovered/Not Resolved]
  - Dyspnoea exertional [Not Recovered/Not Resolved]
  - Chest pain [Unknown]
  - Peripheral swelling [Unknown]
